FAERS Safety Report 14332545 (Version 2)
Quarter: 2018Q1

REPORT INFORMATION
  Report Type: Spontaneous
  Country: US (occurrence: US)
  Receive Date: 20171228
  Receipt Date: 20180213
  Transmission Date: 20180509
  Serious: Yes (Disabling, Other)
  Sender: FDA-Public Use
  Company Number: US-009507513-1712USA011393

PATIENT
  Age: 56 Year
  Sex: Female

DRUGS (1)
  1. KEYTRUDA [Suspect]
     Active Substance: PEMBROLIZUMAB
     Indication: NON-SMALL CELL LUNG CANCER METASTATIC
     Dosage: 140 MG, EVERY 3 WEEKS
     Route: 042
     Dates: start: 20161207, end: 20171218

REACTIONS (4)
  - Lower respiratory tract infection [Not Recovered/Not Resolved]
  - Malignant neoplasm progression [Unknown]
  - Neck pain [Unknown]
  - Pneumonitis [Unknown]

NARRATIVE: CASE EVENT DATE: 20161214
